FAERS Safety Report 7394927-9 (Version None)
Quarter: 2011Q2

REPORT INFORMATION
  Report Type: 
  Country: None (occurrence: None)
  Receive Date: 20110405
  Receipt Date: 20110328
  Transmission Date: 20111010
  Serious: Yes (Other)
  Sender: FDA-Public Use
  Company Number: B0710531A

PATIENT
  Age: 40 Year
  Sex: Female
  Weight: 90 kg

DRUGS (2)
  1. AVAMYS [Suspect]
     Dosage: 110MCG PER DAY
     Route: 045
     Dates: start: 20110325, end: 20110325
  2. CLARITHROMYCIN [Concomitant]
     Route: 048
     Dates: end: 20110327

REACTIONS (5)
  - ANGIOEDEMA [None]
  - RHINORRHOEA [None]
  - BLOOD PRESSURE INCREASED [None]
  - LIP OEDEMA [None]
  - NASAL DISCOMFORT [None]
